FAERS Safety Report 5873264-5 (Version None)
Quarter: 2008Q3

REPORT INFORMATION
  Report Type: 
  Country: None (occurrence: None)
  Receive Date: 20080908
  Receipt Date: 20080828
  Transmission Date: 20090109
  Serious: Yes (Hospitalization)
  Sender: FDA-Public Use
  Company Number: JP-JNJFOC-20080900292

PATIENT
  Age: 67 Year
  Sex: Female
  Weight: 68 kg

DRUGS (18)
  1. REMICADE [Suspect]
     Dosage: 18TH INFUSION
     Route: 042
  2. REMICADE [Suspect]
     Dosage: 16 DOSES ON UNKNOWN DATES
     Route: 042
  3. REMICADE [Suspect]
     Indication: RHEUMATOID ARTHRITIS
     Route: 042
  4. RHEUMATREX [Concomitant]
     Indication: RHEUMATOID ARTHRITIS
     Route: 048
  5. GASLON N [Concomitant]
     Route: 048
  6. BONALON [Concomitant]
     Route: 048
  7. ZYRTEC [Concomitant]
     Route: 048
  8. MUCOSOLVAN L [Concomitant]
     Route: 048
  9. LIMETHASON [Concomitant]
     Route: 042
  10. AZULFIDINE EN-TABS [Concomitant]
     Route: 048
  11. PREDNISONE TAB [Concomitant]
     Route: 048
  12. PREDNISONE TAB [Concomitant]
     Route: 048
  13. PREDNISONE TAB [Concomitant]
     Route: 048
  14. PREDNISONE TAB [Concomitant]
     Route: 048
  15. PREDNISONE TAB [Concomitant]
     Route: 048
  16. PREDNISONE TAB [Concomitant]
     Route: 048
  17. PREDNISONE TAB [Concomitant]
     Route: 048
  18. PREDNISONE TAB [Concomitant]
     Route: 048

REACTIONS (6)
  - ALANINE AMINOTRANSFERASE INCREASED [None]
  - ASPARTATE AMINOTRANSFERASE INCREASED [None]
  - BACK PAIN [None]
  - LIVER DISORDER [None]
  - PNEUMOCYSTIS JIROVECI PNEUMONIA [None]
  - PNEUMONIA PNEUMOCOCCAL [None]
